FAERS Safety Report 8818698 (Version 1)
Quarter: 2012Q4

REPORT INFORMATION
  Report Type: Spontaneous
  Country: US (occurrence: None)
  Receive Date: 20121002
  Receipt Date: 20121002
  Transmission Date: 20130627
  Serious: Yes (Other)
  Sender: FDA-Public Use
  Company Number: 20120587

PATIENT
  Age: 46 Year
  Sex: Female
  Weight: 40 kg

DRUGS (3)
  1. LEVETIRACETAM [Suspect]
     Indication: SEIZURE
  2. PHENYTOIN SODIUM [Suspect]
     Indication: SEIZURE
  3. PHENOBARBITAL [Suspect]
     Indication: SEIZURE

REACTIONS (2)
  - Hypothyroidism [None]
  - Condition aggravated [None]
